FAERS Safety Report 6581666-7 (Version None)
Quarter: 2010Q1

REPORT INFORMATION
  Report Type: 
  Country: None (occurrence: None)
  Receive Date: 20100211
  Receipt Date: 20100211
  Transmission Date: 20100710
  Serious: No
  Sender: FDA-Public Use
  Company Number: None

PATIENT
  Sex: Male
  Weight: 106.5953 kg

DRUGS (1)
  1. BUPROPION HCL [Suspect]
     Indication: DEPRESSION
     Dosage: 300 MG DAILY ORAL
     Route: 048
     Dates: start: 20090701, end: 20090901

REACTIONS (4)
  - ANXIETY [None]
  - NAUSEA [None]
  - PRODUCT SUBSTITUTION ISSUE [None]
  - TREATMENT FAILURE [None]
